FAERS Safety Report 7762016-7 (Version None)
Quarter: 2011Q3

REPORT INFORMATION
  Report Type: 
  Country: None (occurrence: None)
  Receive Date: 20110920
  Receipt Date: 20110916
  Transmission Date: 20111222
  Serious: Yes (Other)
  Sender: FDA-Public Use
  Company Number: US-SHIONOGI, INC-2011000166

PATIENT
  Age: 11 Year
  Sex: Male

DRUGS (3)
  1. KAPVAY [Suspect]
     Dosage: 0.1 MG QD, IN THE MORNING
  2. CLONIDINE [Concomitant]
     Dosage: 0.2 MG, EVERY NIGHT AT BEDTIME
  3. VYVANSE [Concomitant]
     Dosage: 70 MG, EVERY MORNING

REACTIONS (1)
  - SELF INJURIOUS BEHAVIOUR [None]
